FAERS Safety Report 4455580-7 (Version None)
Quarter: 2004Q3

REPORT INFORMATION
  Report Type: 
  Country: None (occurrence: None)
  Receive Date: 20040917
  Receipt Date: 20040826
  Transmission Date: 20050211
  Serious: Yes (Hospitalization)
  Sender: FDA-Public Use
  Company Number: EWC040639478

PATIENT
  Age: 80 Year
  Sex: Male

DRUGS (11)
  1. PERMAX [Suspect]
     Indication: PARKINSON'S DISEASE
     Dosage: 1 MG/4 DAY
     Dates: start: 19990101
  2. SINTROM MITIS (ACENOCOUMAROL) [Concomitant]
  3. SELOKEEN (METOPROLOL TARTRATE) [Concomitant]
  4. ENALAPRIL MALEATE [Concomitant]
  5. SINEMET [Concomitant]
  6. FUROSEMIDE [Concomitant]
  7. NTG (GLYCERYL TRINITRATE) [Concomitant]
  8. BRICANYL [Concomitant]
  9. TEMAZEPAM [Concomitant]
  10. PULMICORT [Concomitant]
  11. DURATEARS [Concomitant]

REACTIONS (11)
  - ANAEMIA [None]
  - AORTIC DISORDER [None]
  - CARDIOMEGALY [None]
  - HEART RATE DECREASED [None]
  - HYDRONEPHROSIS [None]
  - KIDNEY ENLARGEMENT [None]
  - OEDEMA PERIPHERAL [None]
  - RED BLOOD CELL SEDIMENTATION RATE INCREASED [None]
  - RETROPERITONEAL FIBROSIS [None]
  - URETERIC OBSTRUCTION [None]
  - VEIN DISORDER [None]
